FAERS Safety Report 9410459 (Version 1)
Quarter: 2013Q3

REPORT INFORMATION
  Report Type: Spontaneous
  Country: US (occurrence: US)
  Receive Date: 20130719
  Receipt Date: 20130719
  Transmission Date: 20140515
  Serious: Yes (Hospitalization)
  Sender: FDA-Public Use
  Company Number: US-ASTRAZENECA-2013SE26787

PATIENT
  Age: 74 Year
  Sex: Male
  Weight: 78.9 kg

DRUGS (14)
  1. LISINOPRIL(MERCK) [Suspect]
     Route: 048
  2. DILTIAZEM HCL [Suspect]
     Route: 048
  3. DIGOXIN [Suspect]
     Route: 048
  4. CARVEDILOL [Suspect]
     Route: 048
  5. PLACEBO [Suspect]
     Indication: TYPE 2 DIABETES MELLITUS
     Route: 048
     Dates: start: 20110503, end: 20110627
  6. HUMALOG [Suspect]
     Indication: TYPE 2 DIABETES MELLITUS
     Dosage: HUMALOG MIX 50/50
     Route: 065
  7. NIASPAN [Concomitant]
     Route: 048
  8. AMLODIPINE [Concomitant]
     Dosage: AMLODIPINE BESYLATE ALSO TAKEN
     Route: 048
  9. ASPIRIN [Concomitant]
     Dosage: EC
     Route: 048
  10. CENTRUM [Concomitant]
     Route: 048
  11. CRESTOR [Concomitant]
     Route: 048
  12. SYNTHROID [Concomitant]
     Route: 048
  13. VITAMIN D [Concomitant]
     Route: 048
  14. PLAVIX [Concomitant]

REACTIONS (4)
  - Nodal arrhythmia [Recovered/Resolved]
  - Hyperkalaemia [None]
  - Bradycardia [None]
  - Electrocardiogram ST-T change [None]
